FAERS Safety Report 6147034-7 (Version None)
Quarter: 2009Q2

REPORT INFORMATION
  Report Type: 
  Country: None (occurrence: None)
  Receive Date: 20090407
  Receipt Date: 20090323
  Transmission Date: 20091009
  Serious: Yes (Other)
  Sender: FDA-Public Use
  Company Number: US-GENENTECH-280526

PATIENT
  Sex: Female

DRUGS (3)
  1. AVASTIN [Suspect]
     Indication: GENITAL NEOPLASM MALIGNANT FEMALE
     Route: 065
  2. GEMCITABINE HCL [Suspect]
     Indication: GENITAL NEOPLASM MALIGNANT FEMALE
     Route: 065
  3. PEGFILGRASTIM [Suspect]
     Indication: GENITAL NEOPLASM MALIGNANT FEMALE
     Dosage: 6 MG, UNK
     Route: 058

REACTIONS (7)
  - ANAEMIA [None]
  - BONE PAIN [None]
  - FEBRILE NEUTROPENIA [None]
  - GASTROINTESTINAL TOXICITY [None]
  - NEUTROPENIA [None]
  - THROMBOCYTOPENIA [None]
  - UNEVALUABLE EVENT [None]
